FAERS Safety Report 24724679 (Version 1)
Quarter: 2024Q4

REPORT INFORMATION
  Report Type: Spontaneous
  Country: US (occurrence: US)
  Receive Date: 20241212
  Receipt Date: 20241212
  Transmission Date: 20250114
  Serious: Yes (Hospitalization)
  Sender: CHEPLAPHARM
  Company Number: US-CHEPLA-2024015408

PATIENT
  Age: 70 Year
  Sex: Female
  Weight: 77 kg

DRUGS (2)
  1. CAPECITABINE [Suspect]
     Active Substance: CAPECITABINE
  2. OXALIPLATIN [Suspect]
     Active Substance: OXALIPLATIN

REACTIONS (12)
  - Nephrotic syndrome [Unknown]
  - Fatigue [Unknown]
  - Diarrhoea [Unknown]
  - Nausea [Unknown]
  - Fall [Unknown]
  - Syncope [Unknown]
  - Pallor [Unknown]
  - Abdominal distension [Unknown]
  - Presyncope [Unknown]
  - Dehydration [Unknown]
  - Portal vein thrombosis [Unknown]
  - Ascites [Unknown]

NARRATIVE: CASE EVENT DATE: 20241115
